FAERS Safety Report 9940503 (Version 3)
Quarter: 2014Q2

REPORT INFORMATION
  Report Type: Spontaneous
  Country: US (occurrence: US)
  Receive Date: 20140303
  Receipt Date: 20140418
  Transmission Date: 20141212
  Serious: Yes (Disabling)
  Sender: FDA-Public Use
  Company Number: US-PFIZER INC-2014056396

PATIENT
  Age: 50 Year
  Sex: Female
  Weight: 137 kg

DRUGS (1)
  1. TOVIAZ [Suspect]
     Indication: HYPERTONIC BLADDER
     Dosage: 8 MG, DAILY

REACTIONS (5)
  - Musculoskeletal disorder [Unknown]
  - Peripheral nerve injury [Unknown]
  - Peripheral swelling [Unknown]
  - Dysstasia [Unknown]
  - Fall [Unknown]
